FAERS Safety Report 12906290 (Version 1)
Quarter: 2016Q4

REPORT INFORMATION
  Report Type: Spontaneous
  Country: US (occurrence: US)
  Receive Date: 20161102
  Receipt Date: 20161102
  Transmission Date: 20170207
  Serious: Yes (Disabling)
  Sender: FDA-Public Use
  Company Number: None

PATIENT
  Age: 44 Year
  Sex: Male

DRUGS (14)
  1. GABAPENTIN. [Concomitant]
     Active Substance: GABAPENTIN
  2. ESCITALOPRAM OXALATE. [Concomitant]
     Active Substance: ESCITALOPRAM OXALATE
  3. LOSARTAN. [Concomitant]
     Active Substance: LOSARTAN
  4. NUVIGIL [Concomitant]
     Active Substance: ARMODAFINIL
  5. TAMSULOSIN [Concomitant]
     Active Substance: TAMSULOSIN
  6. MAGNESIUM [Concomitant]
     Active Substance: MAGNESIUM
  7. VITAMIN E [Concomitant]
     Active Substance: .ALPHA.-TOCOPHEROL
  8. LURASIDONE 120MG 1 DAILY SUNOVION [Suspect]
     Active Substance: LURASIDONE
     Indication: BIPOLAR DISORDER
     Dosage: 120MG 1 PILL 1 DAILY BY MOUTH
     Route: 048
     Dates: start: 201110, end: 201412
  9. ARACIN [Concomitant]
  10. LURASIDONE 120MG 1 DAILY SUNOVION [Suspect]
     Active Substance: LURASIDONE
     Indication: SCHIZOPHRENIA
     Dosage: 120MG 1 PILL 1 DAILY BY MOUTH
     Route: 048
     Dates: start: 201110, end: 201412
  11. CARVEDILOL. [Concomitant]
     Active Substance: CARVEDILOL
  12. OMEPRAZOLE. [Concomitant]
     Active Substance: OMEPRAZOLE
  13. MILK THISTLE [Concomitant]
     Active Substance: MILK THISTLE
  14. LURASIDONE 120MG 1 DAILY SUNOVION [Suspect]
     Active Substance: LURASIDONE
     Indication: DEPRESSION
     Dosage: 120MG 1 PILL 1 DAILY BY MOUTH
     Route: 048
     Dates: start: 201110, end: 201412

REACTIONS (3)
  - Gynaecomastia [None]
  - Chest pain [None]
  - Sleep disorder [None]

NARRATIVE: CASE EVENT DATE: 201406
